FAERS Safety Report 8639622 (Version 2)
Quarter: 2012Q4

REPORT INFORMATION
  Report Type: 
  Country: US (occurrence: US)
  Receive Date: 20120627
  Receipt Date: 20121023
  Transmission Date: 20130627
  Serious: Yes (Other)
  Sender: FDA-Public Use
  Company Number: US-ROCHE-GNE203250

PATIENT
  Age: 37 Year
  Sex: Male
  Weight: 99.11 kg

DRUGS (8)
  1. XOLAIR [Suspect]
     Indication: ASTHMA
     Dosage: 375 mg, Q2W
     Route: 058
     Dates: start: 20031105, end: 20031119
  2. ADVAIR [Concomitant]
     Dosage: UNK, bid
     Route: 065
  3. THEO-DUR [Concomitant]
     Dosage: 200 mg, bid
     Route: 065
  4. SINGULAIR [Concomitant]
     Dosage: 10 mg, qd
     Route: 065
  5. VENTOLIN [Concomitant]
     Dosage: UNK, prn
     Route: 065
  6. ALLEGRA [Concomitant]
     Dosage: 180 mg, qd
     Route: 065
  7. ALBUTEROL [Concomitant]
     Dosage: UNK, prn
     Route: 065
  8. SOLU-MEDROL [Concomitant]
     Indication: RASH
     Dosage: 125 mg, UNK
     Route: 030
     Dates: start: 20031106

REACTIONS (4)
  - Rash generalised [Recovering/Resolving]
  - Pruritus [Recovering/Resolving]
  - Erythema [Recovering/Resolving]
  - Dyspnoea [Not Recovered/Not Resolved]
